FAERS Safety Report 20712891 (Version 3)
Quarter: 2022Q2

REPORT INFORMATION
  Report Type: Report from Study
  Country: US (occurrence: US)
  Receive Date: 20220415
  Receipt Date: 20220509
  Transmission Date: 20220721
  Serious: Yes (Life-Threatening, Hospitalization, Other)
  Sender: FDA-Public Use
  Company Number: US-NOVARTISPH-NVSC2022US085988

PATIENT
  Age: 78 Year
  Sex: Male

DRUGS (2)
  1. ENTRESTO [Suspect]
     Active Substance: SACUBITRIL\VALSARTAN
     Indication: Hypertension
     Dosage: UNK
     Route: 065
  2. ENTRESTO [Suspect]
     Active Substance: SACUBITRIL\VALSARTAN
     Dosage: 100 MG, BID (49/51 MG)
     Route: 048
     Dates: start: 20200218

REACTIONS (17)
  - Near death experience [Unknown]
  - COVID-19 [Recovered/Resolved]
  - Cough [Unknown]
  - Fall [Unknown]
  - Diarrhoea [Unknown]
  - Asthenia [Unknown]
  - Dyspnoea [Unknown]
  - Respiratory failure [Unknown]
  - Blood loss anaemia [Unknown]
  - Pneumonia [Unknown]
  - Acute respiratory distress syndrome [Unknown]
  - Septic shock [Unknown]
  - Acute kidney injury [Unknown]
  - Upper gastrointestinal haemorrhage [Unknown]
  - Gastric ulcer [Unknown]
  - Deep vein thrombosis [Unknown]
  - Liver function test increased [Unknown]

NARRATIVE: CASE EVENT DATE: 20220120
